FAERS Safety Report 7124953-6 (Version None)
Quarter: 2010Q4

REPORT INFORMATION
  Report Type: 
  Country: None (occurrence: None)
  Receive Date: 20101123
  Receipt Date: 20101123
  Transmission Date: 20110411
  Serious: No
  Sender: FDA-Public Use
  Company Number: None

PATIENT
  Age: 23 Year
  Sex: Female
  Weight: 63.5036 kg

DRUGS (1)
  1. IMITREX [Suspect]
     Indication: MIGRAINE WITH AURA
     Dosage: 100MG ONSET OF MIGRAINE PO
     Route: 048
     Dates: start: 19990101, end: 20100101

REACTIONS (7)
  - APHASIA [None]
  - CHEST DISCOMFORT [None]
  - CHEST PAIN [None]
  - FATIGUE [None]
  - HYPOAESTHESIA [None]
  - JOINT STIFFNESS [None]
  - NAUSEA [None]
